FAERS Safety Report 4364864-2 (Version None)
Quarter: 2004Q2

REPORT INFORMATION
  Report Type: 
  Country: None (occurrence: None)
  Receive Date: 20040521
  Receipt Date: 20040510
  Transmission Date: 20050107
  Serious: Yes (Life-Threatening)
  Sender: FDA-Public Use
  Company Number: 19903

PATIENT
  Age: 44 Year
  Sex: Male
  Weight: 107 kg

DRUGS (8)
  1. NIASPAN [Suspect]
     Indication: HYPERLIPIDAEMIA
     Dosage: 1000 MG BID PO
     Route: 048
     Dates: start: 20040405, end: 20040411
  2. NOVOMIX [Concomitant]
  3. ASPIRIN [Concomitant]
  4. METFORMIN [Concomitant]
  5. SIMVASTATIN [Concomitant]
  6. FENOFIBRATE [Concomitant]
  7. TADALAFIL [Concomitant]
  8. CANDESARTAN [Concomitant]

REACTIONS (1)
  - ANGINA PECTORIS [None]
